FAERS Safety Report 13899188 (Version 1)
Quarter: 2017Q3

REPORT INFORMATION
  Report Type: Spontaneous
  Country: US (occurrence: US)
  Receive Date: 20170823
  Receipt Date: 20170823
  Transmission Date: 20171127
  Serious: No
  Sender: FDA-Public Use
  Company Number: US-JAZZ-2017-US-007666

PATIENT
  Age: 65 Year
  Sex: Female

DRUGS (32)
  1. COENZYME Q10 [Concomitant]
     Active Substance: UBIDECARENONE
  2. ESTROGEN NOS W/PROGESTERONE [Concomitant]
  3. MINOCYCLINE HCL [Concomitant]
     Active Substance: MINOCYCLINE HYDROCHLORIDE
  4. TRETINOIN. [Concomitant]
     Active Substance: TRETINOIN
  5. XYREM [Suspect]
     Active Substance: SODIUM OXYBATE
     Indication: NARCOLEPSY
     Dosage: 2.25G, BID
     Route: 048
     Dates: start: 2013, end: 201410
  6. HYDROCODONE BITARTRATE AND ACETAMINOPHEN [Concomitant]
     Active Substance: ACETAMINOPHEN\HYDROCODONE BITARTRATE
  7. NUVIGIL [Concomitant]
     Active Substance: ARMODAFINIL
  8. CEPHALEXIN                         /00145501/ [Concomitant]
     Active Substance: CEPHALEXIN
  9. MODAFINIL. [Concomitant]
     Active Substance: MODAFINIL
  10. DESONIDE. [Concomitant]
     Active Substance: DESONIDE
  11. CALCIUM + VITAMIN D                /01483701/ [Concomitant]
     Active Substance: CALCIUM\VITAMIN D
  12. MAGNESIUM ALUMINUM SILICATE [Concomitant]
     Active Substance: MAGNESIUM ALUMINUM SILICATE
  13. RITALIN [Concomitant]
     Active Substance: METHYLPHENIDATE HYDROCHLORIDE
  14. IRON [Concomitant]
     Active Substance: IRON
  15. ZOLOFT [Concomitant]
     Active Substance: SERTRALINE HYDROCHLORIDE
  16. IMITREX [Concomitant]
     Active Substance: SUMATRIPTAN SUCCINATE
  17. HALOG [Concomitant]
     Active Substance: HALCINONIDE
  18. XYREM [Suspect]
     Active Substance: SODIUM OXYBATE
     Dosage: 4.5G, BID
     Route: 048
     Dates: start: 201410, end: 20170610
  19. FLUCONAZOLE. [Concomitant]
     Active Substance: FLUCONAZOLE
  20. VIIBRYD [Concomitant]
     Active Substance: VILAZODONE HYDROCHLORIDE
  21. DIAZEPAM. [Concomitant]
     Active Substance: DIAZEPAM
  22. PREDNISONE. [Concomitant]
     Active Substance: PREDNISONE
  23. FISH OIL 1-A-DAY + VITAMIN D3 [Concomitant]
  24. HYDROCHLOROTHIAZIDE. [Concomitant]
     Active Substance: HYDROCHLOROTHIAZIDE
  25. KLOR-CON [Concomitant]
     Active Substance: POTASSIUM CHLORIDE
  26. ACYCLOVIR                          /00587301/ [Concomitant]
     Active Substance: ACYCLOVIR
  27. FUROSEMIDE. [Concomitant]
     Active Substance: FUROSEMIDE
  28. IBUPROFEN                          /00109205/ [Concomitant]
     Active Substance: IBUPROFEN
  29. LIDOCAINE HCL [Concomitant]
     Active Substance: LIDOCAINE HYDROCHLORIDE
  30. NORCO [Concomitant]
     Active Substance: ACETAMINOPHEN\HYDROCODONE BITARTRATE
  31. ZITHROMAX [Concomitant]
     Active Substance: AZITHROMYCIN DIHYDRATE
  32. FLONASE                            /00908302/ [Concomitant]
     Active Substance: MOMETASONE FUROATE

REACTIONS (7)
  - Fall [Recovered/Resolved]
  - Disorientation [Unknown]
  - Nocturia [Not Recovered/Not Resolved]
  - Night sweats [Not Recovered/Not Resolved]
  - Abdominal discomfort [Not Recovered/Not Resolved]
  - Tremor [Not Recovered/Not Resolved]
  - Hallucination [Unknown]

NARRATIVE: CASE EVENT DATE: 201706
